FAERS Safety Report 5278516-8 (Version None)
Quarter: 2007Q1

REPORT INFORMATION
  Report Type: 
  Country: None (occurrence: None)
  Receive Date: 20070322
  Receipt Date: 20070313
  Transmission Date: 20070707
  Serious: Yes (Other)
  Sender: FDA-Public Use
  Company Number: 238198

PATIENT
  Age: 22 Year
  Sex: Female

DRUGS (5)
  1. RAPTIVA [Suspect]
     Indication: DERMATITIS ATOPIC
     Dosage: 1/WEEK, SUBCUTANEOUS
     Route: 058
     Dates: start: 20061121
  2. ALBUTEROL INHALER (ALBUTEROL/ALBUTEROL SULFATE) [Concomitant]
  3. FLOVENT [Concomitant]
  4. CLARITIN [Concomitant]
  5. BIRTH CONTROL PILLS (UNK INGREDIENTS) (ORAL CONTRACEPTIVE NOS) [Concomitant]

REACTIONS (3)
  - FACIAL PALSY [None]
  - INFECTION [None]
  - TONGUE BLISTERING [None]
